FAERS Safety Report 6988129-5 (Version None)
Quarter: 2010Q3

REPORT INFORMATION
  Report Type: 
  Country: None (occurrence: None)
  Receive Date: 20100916
  Receipt Date: 20100906
  Transmission Date: 20110219
  Serious: Yes (Hospitalization)
  Sender: FDA-Public Use
  Company Number: B0674682A

PATIENT
  Sex: Male

DRUGS (4)
  1. VENTOLIN [Suspect]
     Indication: RESPIRATORY FAILURE
     Route: 055
     Dates: start: 20100207, end: 20100210
  2. ATROVENT [Concomitant]
     Dates: start: 20100207, end: 20100210
  3. CLEXANE [Concomitant]
     Dates: start: 20100207, end: 20100210
  4. OMEPRAZOLE [Concomitant]
     Dates: start: 20100207, end: 20100208

REACTIONS (1)
  - PRINZMETAL ANGINA [None]
